FAERS Safety Report 5975684-7 (Version None)
Quarter: 2008Q4

REPORT INFORMATION
  Report Type: 
  Country: None (occurrence: None)
  Receive Date: 20081202
  Receipt Date: 20081121
  Transmission Date: 20090506
  Serious: Yes (Other)
  Sender: FDA-Public Use
  Company Number: PHHY2008JP23516

PATIENT
  Sex: Male

DRUGS (5)
  1. SIMULECT [Suspect]
     Indication: RENAL TRANSPLANT
     Dosage: 20 MG, ONCE/SINGLE
     Route: 042
     Dates: start: 20061012, end: 20061012
  2. SIMULECT [Suspect]
     Indication: PYELONEPHRITIS CHRONIC
     Dosage: 20 MG, ONCE/SINGLE
     Route: 042
     Dates: start: 20061016, end: 20061016
  3. CELLCEPT [Suspect]
     Indication: RENAL TRANSPLANT
     Route: 048
  4. NEORAL [Suspect]
     Indication: RENAL TRANSPLANT
  5. PREDNISOLONE [Suspect]
     Indication: RENAL TRANSPLANT

REACTIONS (2)
  - EPSTEIN-BARR VIRUS INFECTION [None]
  - LYMPHOPROLIFERATIVE DISORDER [None]
